FAERS Safety Report 6137211-3 (Version None)
Quarter: 2009Q1

REPORT INFORMATION
  Report Type: 
  Country: None (occurrence: None)
  Receive Date: 20090330
  Receipt Date: 20090323
  Transmission Date: 20090719
  Serious: Yes (Hospitalization)
  Sender: FDA-Public Use
  Company Number: PHHY2008AT28126

PATIENT
  Sex: Male
  Weight: 80 kg

DRUGS (3)
  1. GLEEVEC [Suspect]
     Indication: CHRONIC MYELOID LEUKAEMIA
     Dosage: 400 MG DAILY
     Dates: start: 20041115
  2. ASPIRIN [Concomitant]
     Indication: THROMBOSIS
     Dosage: 100 MG DAILY
     Route: 048
  3. ALLOBENZ [Concomitant]
     Indication: HYPERURICAEMIA
     Dosage: 100 MG DAILY
     Route: 048

REACTIONS (3)
  - ARTERIAL OCCLUSIVE DISEASE [None]
  - ENDARTERECTOMY [None]
  - MUSCLE SPASMS [None]
